FAERS Safety Report 8831622 (Version 4)
Quarter: 2015Q4

REPORT INFORMATION
  Report Type: Spontaneous
  Country: US (occurrence: US)
  Receive Date: 20121009
  Receipt Date: 20151202
  Transmission Date: 20160305
  Serious: Yes (Hospitalization, Other)
  Sender: FDA-Public Use
  Company Number: US-ELI_LILLY_AND_COMPANY-US201201004821

PATIENT
  Age: 42 Year
  Sex: Male
  Weight: 127 kg

DRUGS (9)
  1. HUMATROPE [Suspect]
     Active Substance: SOMATROPIN
     Indication: GROWTH HORMONE DEFICIENCY
     Dosage: 3.6 MG, QD
  2. HUMATROPE [Suspect]
     Active Substance: SOMATROPIN
     Dosage: UNK, UNKNOWN
     Route: 065
     Dates: start: 2015
  3. TESTOSTERONE. [Concomitant]
     Active Substance: TESTOSTERONE
     Dosage: UNK
     Dates: start: 2009
  4. EFFIENT [Concomitant]
     Active Substance: PRASUGREL HYDROCHLORIDE
     Dosage: UNK, UNKNOWN
     Dates: start: 201511
  5. HUMATROPE [Suspect]
     Active Substance: SOMATROPIN
     Dosage: 0.4 MG, QD
     Dates: start: 201207
  6. LOSARTAN. [Concomitant]
     Active Substance: LOSARTAN
     Dosage: UNK, UNKNOWN
  7. HYDROCODONE [Concomitant]
     Active Substance: HYDROCODONE
  8. HUMATROPE [Suspect]
     Active Substance: SOMATROPIN
     Dosage: 0.8 MG, QD
     Dates: start: 201201
  9. PERCOCET [Concomitant]
     Active Substance: ACETAMINOPHEN\OXYCODONE HYDROCHLORIDE
     Dosage: UNK, UNKNOWN
     Route: 065

REACTIONS (15)
  - Wrong technique in product usage process [Unknown]
  - Coronary artery occlusion [Unknown]
  - Ejection fraction decreased [Unknown]
  - Fatigue [Unknown]
  - Hidradenitis [Unknown]
  - Arteriosclerosis [Unknown]
  - Scrotal cyst [Unknown]
  - Swelling [Unknown]
  - Wound [Unknown]
  - Suture rupture [Unknown]
  - Impaired healing [Unknown]
  - Cyst [Unknown]
  - Drug dose omission [Unknown]
  - Feeling abnormal [Unknown]
  - Post procedural complication [Unknown]

NARRATIVE: CASE EVENT DATE: 201209
